FAERS Safety Report 9308433 (Version 1)
Quarter: 2013Q2

REPORT INFORMATION
  Report Type: Spontaneous
  Country: US (occurrence: US)
  Receive Date: 20130524
  Receipt Date: 20130524
  Transmission Date: 20140414
  Serious: No
  Sender: FDA-Public Use
  Company Number: US-BRISTOL-MYERS SQUIBB COMPANY-17419680

PATIENT
  Sex: Female

DRUGS (6)
  1. PRAVACHOL [Suspect]
     Indication: BLOOD CHOLESTEROL
  2. LOVASTATIN [Suspect]
     Indication: BLOOD CHOLESTEROL
  3. LIPITOR [Suspect]
     Indication: BLOOD CHOLESTEROL
  4. CRESTOR [Suspect]
     Indication: BLOOD CHOLESTEROL
  5. SIMVASTATIN [Suspect]
     Indication: BLOOD CHOLESTEROL
  6. RED YEAST RICE [Suspect]
     Indication: BLOOD CHOLESTEROL

REACTIONS (4)
  - Blood cholesterol increased [Unknown]
  - Chest pain [Unknown]
  - Dizziness [Unknown]
  - Malaise [Unknown]
